FAERS Safety Report 9182822 (Version 1)
Quarter: 2013Q1

REPORT INFORMATION
  Report Type: Spontaneous
  Country: US (occurrence: US)
  Receive Date: 20130322
  Receipt Date: 20130322
  Transmission Date: 20140127
  Serious: No
  Sender: FDA-Public Use
  Company Number: US-BRISTOL-MYERS SQUIBB COMPANY-16401192

PATIENT
  Sex: Male

DRUGS (2)
  1. ERBITUX [Suspect]
     Dosage: 2 WEEKS THEN A WEEK OFF
  2. CAMPTOSAR [Suspect]

REACTIONS (6)
  - Nausea [Unknown]
  - Back pain [Unknown]
  - Abdominal pain [Unknown]
  - Retching [Unknown]
  - Weight decreased [Unknown]
  - Dehydration [Unknown]
